FAERS Safety Report 4883243-2 (Version None)
Quarter: 2006Q1

REPORT INFORMATION
  Report Type: 
  Country: None (occurrence: None)
  Receive Date: 20060117
  Receipt Date: 20060117
  Transmission Date: 20060701
  Serious: Yes (Other)
  Sender: FDA-Public Use
  Company Number: None

PATIENT
  Sex: Male
  Weight: 110 kg

DRUGS (2)
  1. DIPHENHYDRAMINE 50MG [Suspect]
     Dosage: 50MG BID PO
     Route: 048
     Dates: start: 20051222, end: 20051226
  2. PSEUDOEPHEDRINE 30MG [Suspect]
     Dosage: 30MG BID PO
     Route: 048
     Dates: start: 20051222, end: 20051226

REACTIONS (1)
  - DIZZINESS [None]
